FAERS Safety Report 12709365 (Version 1)
Quarter: 2016Q3

REPORT INFORMATION
  Report Type: Spontaneous
  Country: US (occurrence: None)
  Receive Date: 20160901
  Receipt Date: 20160901
  Transmission Date: 20161109
  Serious: Yes (Other)
  Sender: FDA-Public Use
  Company Number: None

PATIENT
  Age: 79 Year
  Sex: Male
  Weight: 74.84 kg

DRUGS (1)
  1. TAMSULOSIN 0.4 CAPSULE [Suspect]
     Active Substance: TAMSULOSIN

REACTIONS (1)
  - Product label issue [None]

NARRATIVE: CASE EVENT DATE: 20160831
